FAERS Safety Report 9094603 (Version 1)
Quarter: 2013Q1

REPORT INFORMATION
  Report Type: Spontaneous
  Country: BR (occurrence: BR)
  Receive Date: 20130204
  Receipt Date: 20130204
  Transmission Date: 20140127
  Serious: Yes (Other)
  Sender: FDA-Public Use
  Company Number: BR-AMGEN-BRASP2013007282

PATIENT
  Age: 50 Year
  Sex: Female
  Weight: 60 kg

DRUGS (4)
  1. ENBREL [Suspect]
     Indication: RHEUMATOID ARTHRITIS
     Dosage: 50 MG, ONCE WEEKLY
     Route: 058
     Dates: start: 201211
  2. DEFLAZACORT [Concomitant]
     Dosage: UNK
  3. OMEPRAZOLE [Concomitant]
     Dosage: UNK
  4. DIPIRONE [Concomitant]
     Indication: PAIN
     Dosage: UNK DOSE (IF FEELING PAIN)

REACTIONS (7)
  - Rheumatoid arthritis [Not Recovered/Not Resolved]
  - Wrong technique in drug usage process [Unknown]
  - Injection site reaction [Unknown]
  - Injection site macule [Unknown]
  - Injection site induration [Unknown]
  - Injection site oedema [Unknown]
  - Injection site pruritus [Unknown]
